FAERS Safety Report 4783239-5 (Version None)
Quarter: 2005Q3

REPORT INFORMATION
  Report Type: 
  Country: None (occurrence: None)
  Receive Date: 20050928
  Receipt Date: 20050928
  Transmission Date: 20060218
  Serious: Yes (Hospitalization)
  Sender: FDA-Public Use
  Company Number: None

PATIENT
  Age: 56 Year
  Sex: Female
  Weight: 72.5755 kg

DRUGS (1)
  1. GEODON [Suspect]
     Indication: DEPRESSION
     Dosage: 80 MG TWICE DAILY

REACTIONS (8)
  - ANXIETY [None]
  - CHEST PAIN [None]
  - DYSKINESIA [None]
  - HEART RATE INCREASED [None]
  - HYPERTENSION [None]
  - LABORATORY TEST ABNORMAL [None]
  - NERVOUSNESS [None]
  - VOMITING [None]
